FAERS Safety Report 5480078-7 (Version None)
Quarter: 2007Q4

REPORT INFORMATION
  Report Type: 
  Country: None (occurrence: None)
  Receive Date: 20071008
  Receipt Date: 20070926
  Transmission Date: 20080405
  Serious: Yes (Hospitalization)
  Sender: FDA-Public Use
  Company Number: FR-PFIZER INC-2007081737

PATIENT
  Age: 72 Year
  Sex: Female

DRUGS (10)
  1. CLINDAMYCIN HCL [Suspect]
     Indication: ERYSIPELAS
     Dosage: DAILY DOSE:1800MG
     Route: 048
     Dates: start: 20070406, end: 20070419
  2. OFLOXACIN [Suspect]
     Indication: ERYSIPELAS
     Dosage: DAILY DOSE:200MG
     Route: 048
     Dates: start: 20070324, end: 20070419
  3. ATENOLOL [Concomitant]
     Route: 048
  4. ATORVASTATIN CALCIUM [Concomitant]
     Route: 048
  5. RILMENIDINE [Concomitant]
     Route: 048
  6. RAMIPRIL [Concomitant]
     Route: 048
  7. FERROUS FUMARATE [Concomitant]
  8. LACTULOSE [Concomitant]
  9. FLUINDIONE [Concomitant]
  10. FUROSEMIDE [Concomitant]

REACTIONS (4)
  - CONVULSION [None]
  - HYPOTENSION [None]
  - SYNCOPE [None]
  - VOMITING [None]
